FAERS Safety Report 6662108-X (Version None)
Quarter: 2010Q1

REPORT INFORMATION
  Report Type: 
  Country: None (occurrence: None)
  Receive Date: 20100331
  Receipt Date: 20100326
  Transmission Date: 20100710
  Serious: Yes (Other)
  Sender: FDA-Public Use
  Company Number: US-GENZYME-CERZ-1001197

PATIENT
  Sex: Female
  Weight: 84 kg

DRUGS (6)
  1. CEREZYME [Suspect]
     Indication: GAUCHER'S DISEASE
     Dosage: 3000 U, Q2W
     Route: 042
     Dates: start: 19990101
  2. FOSAMAX [Concomitant]
     Indication: OSTEOPENIA
     Dosage: 70 MG, QW
     Route: 065
  3. LIPITOR [Concomitant]
     Indication: LIPIDS ABNORMAL
     Dosage: 100 MG, QD
     Route: 048
  4. ASPIRIN [Concomitant]
     Indication: DRUG USE FOR UNKNOWN INDICATION
     Dosage: 81 MG, QD
     Route: 048
  5. ENABLEX [Concomitant]
     Indication: DRUG USE FOR UNKNOWN INDICATION
     Dosage: 15 MG, QD
     Route: 048
  6. DIOVAN [Concomitant]
     Indication: DRUG USE FOR UNKNOWN INDICATION
     Dosage: 60 MG, BID
     Route: 048

REACTIONS (1)
  - PARKINSON'S DISEASE [None]
